FAERS Safety Report 9848770 (Version 1)
Quarter: 2014Q1

REPORT INFORMATION
  Report Type: Spontaneous
  Country: US (occurrence: None)
  Receive Date: 20140124
  Receipt Date: 20140124
  Transmission Date: 20141002
  Serious: Yes (Other)
  Sender: FDA-Public Use
  Company Number: None

PATIENT
  Age: 73 Year
  Sex: Male
  Weight: 101.3 kg

DRUGS (1)
  1. ENALAPRIL [Suspect]
     Route: 048
     Dates: start: 20080115, end: 20130911

REACTIONS (4)
  - Urticaria [None]
  - Pruritus [None]
  - Hypoaesthesia [None]
  - Oedema mouth [None]
